FAERS Safety Report 8227536 (Version 7)
Quarter: 2019Q4

REPORT INFORMATION
  Report Type: Spontaneous
  Country: US (occurrence: US)
  Receive Date: 20111103
  Receipt Date: 20191007
  Transmission Date: 20200122
  Serious: Yes (Hospitalization, Other)
  Sender: FDA-Public Use
  Company Number: US-AMGEN-USASP2011038849

PATIENT
  Age: 77 Year
  Sex: Female

DRUGS (14)
  1. CALCIUM [Concomitant]
     Active Substance: CALCIUM
     Dosage: UNK
  2. PLAQUENIL [Suspect]
     Active Substance: HYDROXYCHLOROQUINE SULFATE
     Indication: ANKYLOSING SPONDYLITIS
     Dosage: UNK
     Route: 065
  3. MEDROL [Concomitant]
     Active Substance: METHYLPREDNISOLONE
     Dosage: UNK
  4. MAGNESIUM [Concomitant]
     Active Substance: MAGNESIUM
     Dosage: UNK
  5. ENBREL [Suspect]
     Active Substance: ETANERCEPT
     Indication: ARTHRITIS
     Dosage: 50 MG, ONCE WEEKLY
     Route: 058
  6. ENBREL [Suspect]
     Active Substance: ETANERCEPT
     Dosage: 50 MG, ONCE WEEKLY
     Route: 058
  7. FOSAMAX [Suspect]
     Active Substance: ALENDRONATE SODIUM
     Indication: PRODUCT USED FOR UNKNOWN INDICATION
     Dosage: UNK
     Route: 065
  8. ZILLION [Concomitant]
     Dosage: UNK
  9. ENBREL [Suspect]
     Active Substance: ETANERCEPT
     Indication: RHEUMATOID ARTHRITIS
     Dosage: UNK
     Route: 065
     Dates: start: 20020101
  10. ENBREL [Suspect]
     Active Substance: ETANERCEPT
     Indication: ANKYLOSING SPONDYLITIS
     Dosage: 50 MG, ONCE WEEKLY
     Route: 058
  11. PROLIA [Suspect]
     Active Substance: DENOSUMAB
     Indication: PRODUCT USED FOR UNKNOWN INDICATION
     Dosage: UNK
     Route: 065
  12. METHOTREXATE. [Suspect]
     Active Substance: METHOTREXATE
     Indication: ANKYLOSING SPONDYLITIS
     Dosage: UNK
     Route: 065
  13. PREDNISONE. [Concomitant]
     Active Substance: PREDNISONE
     Dosage: UNK
  14. CORTISONE [Concomitant]
     Active Substance: CORTISONE
     Dosage: UNK

REACTIONS (43)
  - Fall [Unknown]
  - Hip fracture [Unknown]
  - Therapeutic product effect incomplete [Unknown]
  - Arthralgia [Not Recovered/Not Resolved]
  - Spider vein [Not Recovered/Not Resolved]
  - Oesophageal disorder [Unknown]
  - Tooth repair [Unknown]
  - Back pain [Not Recovered/Not Resolved]
  - Cough [Unknown]
  - Osteoporosis [Unknown]
  - Device issue [Unknown]
  - Mobility decreased [Unknown]
  - Sinusitis [Unknown]
  - Joint fluid drainage [Unknown]
  - Joint warmth [Unknown]
  - Injection site haemorrhage [Unknown]
  - Injection site warmth [Unknown]
  - Injection site reaction [Unknown]
  - Tuberculosis [Unknown]
  - Vascular rupture [Unknown]
  - Malaise [Unknown]
  - Injection site pruritus [Unknown]
  - Musculoskeletal discomfort [Unknown]
  - Blood urine present [Unknown]
  - Gait disturbance [Unknown]
  - Arthropathy [Unknown]
  - Injection site mass [Unknown]
  - Injection site pain [Unknown]
  - Joint swelling [Unknown]
  - Arthritis [Unknown]
  - Fractured sacrum [Unknown]
  - Joint range of motion decreased [Unknown]
  - Pain [Unknown]
  - Sinus disorder [Unknown]
  - Bladder disorder [Unknown]
  - Knee deformity [Unknown]
  - Accidental exposure to product [Unknown]
  - Chest expansion decreased [Unknown]
  - Injection site erythema [Unknown]
  - Pelvic fracture [Unknown]
  - Sleep apnoea syndrome [Unknown]
  - Micturition urgency [Unknown]
  - Bone density abnormal [Unknown]

NARRATIVE: CASE EVENT DATE: 201408
